FAERS Safety Report 17675464 (Version 1)
Quarter: 2020Q2

REPORT INFORMATION
  Report Type: Spontaneous
  Country: CA (occurrence: CA)
  Receive Date: 20200416
  Receipt Date: 20200416
  Transmission Date: 20200714
  Serious: Yes (Death)
  Sender: FDA-Public Use
  Company Number: NVSC2020CA101656

PATIENT
  Age: 61 Year
  Sex: Male

DRUGS (1)
  1. ATRIANCE [Suspect]
     Active Substance: NELARABINE
     Indication: PRODUCT USED FOR UNKNOWN INDICATION
     Dosage: UNK
     Route: 042

REACTIONS (3)
  - Leukaemia recurrent [Fatal]
  - T-cell type acute leukaemia [Fatal]
  - Nervous system disorder [Fatal]
